FAERS Safety Report 6641623-9 (Version None)
Quarter: 2010Q1

REPORT INFORMATION
  Report Type: 
  Country: None (occurrence: None)
  Receive Date: 20100317
  Receipt Date: 20100317
  Transmission Date: 20100710
  Serious: Yes (Hospitalization)
  Sender: FDA-Public Use
  Company Number: None

PATIENT
  Sex: Male
  Weight: 59.5 kg

DRUGS (5)
  1. REVLIMID [Suspect]
     Indication: PROSTATE CANCER
     Dosage: 15 MG ABX21DAYS PO
     Route: 048
     Dates: start: 20090722, end: 20091223
  2. AMLODIPINE [Concomitant]
  3. ATENOLOL [Concomitant]
  4. LIPITOR [Concomitant]
  5. SERTRALINE [Concomitant]

REACTIONS (9)
  - ASTHENIA [None]
  - BLOOD CHLORIDE INCREASED [None]
  - BLOOD CREATININE INCREASED [None]
  - BLOOD SODIUM INCREASED [None]
  - BLOOD UREA INCREASED [None]
  - DEHYDRATION [None]
  - FATIGUE [None]
  - HAEMOGLOBIN DECREASED [None]
  - RED BLOOD CELL COUNT DECREASED [None]
